FAERS Safety Report 11400272 (Version 3)
Quarter: 2015Q3

REPORT INFORMATION
  Report Type: Report from Study
  Country: US (occurrence: US)
  Receive Date: 20150820
  Receipt Date: 20150908
  Transmission Date: 20151125
  Serious: No
  Sender: FDA-Public Use
  Company Number: US-AMGEN-USASP2015080956

PATIENT
  Age: 62 Year
  Sex: Female
  Weight: 77.98 kg

DRUGS (41)
  1. HYDROCODONE BITARTRATE AND ACETAMINOPHEN [Concomitant]
     Active Substance: ACETAMINOPHEN\HYDROCODONE BITARTRATE
     Dosage: 325 MG, Q6H, AS NEEDED
     Route: 048
     Dates: start: 20150811, end: 20150821
  2. PREDNISONE. [Concomitant]
     Active Substance: PREDNISONE
     Dosage: 7.5 MG, QD
  3. MAGNESIUM OXIDE. [Concomitant]
     Active Substance: MAGNESIUM OXIDE
     Dosage: 200 MG, UNK
     Route: 048
  4. OMEPRAZOLE. [Concomitant]
     Active Substance: OMEPRAZOLE
     Indication: GASTRIC ULCER
     Dosage: 40 MG, QD
     Route: 048
     Dates: start: 20141002
  5. PROBIOTIC                          /06395501/ [Concomitant]
     Dosage: UNK UNK, QD
     Route: 048
  6. REMICADE [Concomitant]
     Active Substance: INFLIXIMAB
     Dosage: 400 MG, AS NECESSARY
     Route: 042
  7. ASPIRIN                            /00002701/ [Concomitant]
     Active Substance: ASPIRIN
     Dosage: 81 MG, QD
  8. MILK THISTLE                       /01131701/ [Concomitant]
     Dosage: 1 UNK, QD
     Route: 048
  9. FISH OIL [Concomitant]
     Active Substance: FISH OIL
     Dosage: 1000 MG, QD
     Route: 048
  10. LORATADINE. [Concomitant]
     Active Substance: LORATADINE
     Dosage: 10 MG, QD
  11. BENADRYL [Concomitant]
     Active Substance: DIPHENHYDRAMINE HYDROCHLORIDE
     Dosage: 25 MG, AS NECESSARY
     Route: 042
     Dates: start: 20120417
  12. ENBREL [Suspect]
     Active Substance: ETANERCEPT
     Indication: RHEUMATOID ARTHRITIS
     Dosage: 50 MG, QWK
     Route: 065
     Dates: start: 201408
  13. METHOTREXATE [Concomitant]
     Active Substance: METHOTREXATE
     Dosage: 0.8 ML, QWK
     Route: 058
     Dates: start: 20150512
  14. PREDNISONE. [Concomitant]
     Active Substance: PREDNISONE
     Dosage: 10 MG, QD FOR 2 WEEKS
  15. ALPHA LIPOIC ACID [Concomitant]
     Active Substance: .ALPHA.-LIPOIC ACID
     Dosage: 1 UNK, QD
     Route: 048
  16. IMITREX [Concomitant]
     Active Substance: SUMATRIPTAN\SUMATRIPTAN SUCCINATE
     Indication: HEADACHE
     Dosage: 0.5-1 TABLETS, AS NECESSARY
     Route: 047
  17. FOLIC ACID. [Concomitant]
     Active Substance: FOLIC ACID
     Dosage: 1 MG, QD
     Route: 048
  18. HUMIRA [Concomitant]
     Active Substance: ADALIMUMAB
     Dosage: 40 MG, Q2WK
     Route: 058
     Dates: start: 20150610
  19. VICODIN [Concomitant]
     Active Substance: ACETAMINOPHEN\HYDROCODONE BITARTRATE
     Dosage: INTERMIFTENT 1 TABLET DAILY PRN
  20. CYCLOBENZAPRINE [Concomitant]
     Active Substance: CYCLOBENZAPRINE
     Dosage: 10 MG, BID
     Route: 048
     Dates: start: 20150627
  21. HYDROCODONE BITARTRATE AND ACETAMINOPHEN [Concomitant]
     Active Substance: ACETAMINOPHEN\HYDROCODONE BITARTRATE
     Indication: PAIN
     Dosage: 325 MG, Q6H, AS NEEDED
     Route: 048
     Dates: start: 20150610, end: 20150811
  22. TRAZODONE [Concomitant]
     Active Substance: TRAZODONE HYDROCHLORIDE
     Indication: SLEEP DISORDER
     Dosage: 50 MG, 1-2 TAB AT BEDTIME
     Route: 048
     Dates: start: 20150512
  23. LISINOPRIL + HIDROCLOROTIAZIDA [Concomitant]
     Active Substance: HYDROCHLOROTHIAZIDE\LISINOPRIL
     Dosage: 20-25 MG, QD
     Route: 048
     Dates: start: 20141002
  24. CALCIUM + D3                       /00944201/ [Concomitant]
     Active Substance: CALCIUM\CHOLECALCIFEROL
     Dosage: 750 MG -500 UNIT
     Route: 048
  25. PHENAZOPYRIDINE HCL [Concomitant]
     Active Substance: PHENAZOPYRIDINE HYDROCHLORIDE
     Dosage: 200 MG, TID
     Dates: start: 20150619, end: 20150621
  26. B-COMPLEX                          /00003501/ [Concomitant]
     Active Substance: CYANOCOBALAMIN\DEXPANTHENOL\NIACINAMIDE\PYRIDOXINE HYDROCHLORIDE\RIBOFLAVIN 5^-PHOSPHATE SODIUM\THIAMINE HYDROCHLORIDE\VITAMIN B COMPLEX
     Dosage: UNK UNK, QD
     Route: 048
  27. VITAMIN K [Concomitant]
     Active Substance: PHYTONADIONE
     Dosage: 40 MUG, QD
     Route: 048
  28. LEVAQUIN [Concomitant]
     Active Substance: LEVOFLOXACIN
     Dosage: 500 MG, QD
     Route: 048
     Dates: start: 20150806, end: 20150821
  29. HYDROCODONE BITARTRATE AND ACETAMINOPHEN [Concomitant]
     Active Substance: ACETAMINOPHEN\HYDROCODONE BITARTRATE
     Dosage: 325 MG, Q6H, AS NEEDED
     Route: 048
     Dates: start: 20150512, end: 2015
  30. PREDNISONE. [Concomitant]
     Active Substance: PREDNISONE
     Dosage: 15 MG, QD FOR 2 WEEKS
     Dates: start: 20150512
  31. CINNAMON                           /01647501/ [Concomitant]
     Active Substance: CINNAMON
     Dosage: 1000 MG, QD
     Route: 048
     Dates: start: 20130920
  32. VITAMIN C [Concomitant]
     Active Substance: ASCORBIC ACID
     Dosage: 1000 MG, QD
     Route: 048
  33. VITAMIN D3 [Concomitant]
     Active Substance: CHOLECALCIFEROL
     Dosage: 2000 UNIT, BID
     Route: 048
  34. ZOLEDRONIC ACID [Concomitant]
     Active Substance: ZOLEDRONIC ACID
     Dosage: 5 MG, 1-2X WEEKLY AS NECESSARY
     Route: 042
     Dates: start: 20121219
  35. HYDROXYCHLOROQUINE [Concomitant]
     Active Substance: HYDROXYCHLOROQUINE
     Dosage: 400 MG, QD
     Route: 048
     Dates: start: 20150811
  36. ATENOLOL. [Concomitant]
     Active Substance: ATENOLOL
     Dosage: 25 MG, QD
     Route: 048
     Dates: start: 20141002
  37. TURMERIC CURCUMIN [Concomitant]
     Active Substance: TURMERIC
     Dosage: UNK UNK, QD
  38. FLEXERIL [Concomitant]
     Active Substance: CYCLOBENZAPRINE HYDROCHLORIDE
     Dosage: 1-2 TABLET AT NIGHT PRN
  39. KLOR-CON M10 [Concomitant]
     Active Substance: POTASSIUM CHLORIDE
     Dosage: 10 MEQ, QD
     Route: 048
     Dates: start: 20141002
  40. TUBERCULIN NOS [Concomitant]
     Active Substance: TUBERCULIN PURIFIED PROTEIN DERIVATIVE
     Dosage: 27G X 1/2 INCH NEEDLE, QWK
     Route: 058
     Dates: start: 20130530
  41. ACETAMINOPHEN. [Concomitant]
     Active Substance: ACETAMINOPHEN
     Dosage: 1000 MG, AS NECESSARY
     Route: 048
     Dates: start: 20130316

REACTIONS (18)
  - Arthralgia [Unknown]
  - Osteoarthritis [Unknown]
  - Foot deformity [Unknown]
  - Peripheral swelling [Unknown]
  - Drug effect incomplete [Unknown]
  - Oedema peripheral [Unknown]
  - Pain in extremity [Unknown]
  - Cystitis [Recovered/Resolved]
  - Osteopenia [Unknown]
  - Joint effusion [Unknown]
  - Labyrinthitis [Unknown]
  - Joint swelling [Unknown]
  - Ear disorder [Unknown]
  - Joint warmth [Unknown]
  - Bone disorder [Unknown]
  - Grip strength decreased [Unknown]
  - Joint dislocation [Unknown]
  - Sinusitis [Unknown]

NARRATIVE: CASE EVENT DATE: 2015
